FAERS Safety Report 17755723 (Version 1)
Quarter: 2020Q2

REPORT INFORMATION
  Report Type: Spontaneous
  Country: US (occurrence: US)
  Receive Date: 20200506
  Receipt Date: 20200506
  Transmission Date: 20200714
  Serious: Yes (Other)
  Sender: FDA-Public Use
  Company Number: None

PATIENT
  Age: 69 Year
  Sex: Female
  Weight: 54 kg

DRUGS (22)
  1. LIBRAX [Concomitant]
     Active Substance: CHLORDIAZEPOXIDE HYDROCHLORIDE\CLIDINIUM BROMIDE
  2. CELECOXIB. [Concomitant]
     Active Substance: CELECOXIB
  3. ADVAIR DISKUS [Concomitant]
     Active Substance: FLUTICASONE PROPIONATE\SALMETEROL XINAFOATE
  4. MULTIVITAMIN [Concomitant]
     Active Substance: VITAMINS
  5. VITAMIN D3 [Concomitant]
     Active Substance: CHOLECALCIFEROL
  6. CALCIUM [Concomitant]
     Active Substance: CALCIUM
  7. NEURONTIN [Concomitant]
     Active Substance: GABAPENTIN
  8. URIBEL [Concomitant]
     Active Substance: HYOSCYAMINE SULFATE\METHENAMINE\METHYLENE BLUE\PHENYL SALICYLATE\SODIUM PHOSPHATE, MONOBASIC, MONOHYDRATE
  9. ESTRACE [Concomitant]
     Active Substance: ESTRADIOL
  10. MOMETASONE [Concomitant]
     Active Substance: MOMETASONE
  11. MAGNESIUM [Concomitant]
     Active Substance: MAGNESIUM
  12. CHLORDIAZEPOXIDE HYDROCHLORIDE AND CLIDINIUM BROMIDE [Suspect]
     Active Substance: CHLORDIAZEPOXIDE HYDROCHLORIDE\CLIDINIUM BROMIDE
     Indication: IRRITABLE BOWEL SYNDROME
     Dosage: ?          QUANTITY:540 CAPSULE(S);?
     Route: 048
     Dates: start: 20200505, end: 20200506
  13. AZELASTINE HCL [Concomitant]
     Active Substance: AZELASTINE HYDROCHLORIDE
  14. PROBIOTIC [Concomitant]
     Active Substance: PROBIOTICS NOS
  15. ESOMEPRAZOLE. [Concomitant]
     Active Substance: ESOMEPRAZOLE MAGNESIUM
  16. NIZATIDINE. [Concomitant]
     Active Substance: NIZATIDINE
  17. MONTELUKAST [Concomitant]
     Active Substance: MONTELUKAST SODIUM
  18. AMITRIPTYLINE [Concomitant]
     Active Substance: AMITRIPTYLINE
  19. TYLENOL  ARTHRITS [Concomitant]
  20. VALSARTAN. [Concomitant]
     Active Substance: VALSARTAN
  21. PROVENTIL HFA [Concomitant]
     Active Substance: ALBUTEROL SULFATE
  22. MIRALAX [Concomitant]
     Active Substance: POLYETHYLENE GLYCOL 3350

REACTIONS (4)
  - Vomiting [None]
  - Product substitution issue [None]
  - Abdominal pain upper [None]
  - Nausea [None]

NARRATIVE: CASE EVENT DATE: 20200505
